FAERS Safety Report 6217063-3 (Version None)
Quarter: 2009Q2

REPORT INFORMATION
  Report Type: 
  Country: None (occurrence: None)
  Receive Date: 20090606
  Receipt Date: 20090528
  Transmission Date: 20091009
  Serious: Yes (Other)
  Sender: FDA-Public Use
  Company Number: US-PFIZER INC-2005165531

PATIENT
  Sex: Female
  Weight: 63 kg

DRUGS (5)
  1. PROVERA [Suspect]
     Indication: HORMONE REPLACEMENT THERAPY
     Dosage: 10 MG, UNK
     Route: 048
     Dates: start: 19921001, end: 19950901
  2. PREMPRO [Suspect]
     Indication: HORMONE REPLACEMENT THERAPY
     Route: 065
     Dates: start: 19920101, end: 19980101
  3. PREMARIN [Suspect]
     Indication: HORMONE REPLACEMENT THERAPY
     Dosage: 06.25 MG, UNK
     Route: 065
     Dates: start: 19921001, end: 19950901
  4. PREMPHASE 14/14 [Suspect]
     Indication: HORMONE REPLACEMENT THERAPY
     Dosage: 06.25 MG, UNK
     Dates: start: 19950901, end: 19980101
  5. CIPROFLOXACIN [Concomitant]
     Indication: URINARY TRACT INFECTION
     Dosage: 500 MG, UNK
     Dates: start: 19980101, end: 20050201

REACTIONS (1)
  - BREAST CANCER [None]
